FAERS Safety Report 23509868 (Version 1)
Quarter: 2024Q1

REPORT INFORMATION
  Report Type: Spontaneous
  Country: US (occurrence: US)
  Receive Date: 20240211
  Receipt Date: 20240211
  Transmission Date: 20240410
  Serious: Yes (Hospitalization)
  Sender: FDA-Public Use
  Company Number: US-AUROBINDO-AUR-APL-2020-062277

PATIENT
  Age: 23 Year
  Sex: Female
  Weight: 112 kg

DRUGS (7)
  1. BUPIVACAINE HYDROCHLORIDE [Suspect]
     Active Substance: BUPIVACAINE HYDROCHLORIDE\BUPIVACAINE HYDROCHLORIDE ANHYDROUS
     Indication: Anaesthesia
     Dosage: 9 ML 0.5% BUPIVACAINE
     Route: 008
  2. WARFARIN [Suspect]
     Active Substance: WARFARIN
     Indication: Anticoagulant therapy
     Dosage: UNK
     Route: 065
  3. FENTANYL [Suspect]
     Active Substance: FENTANYL\FENTANYL CITRATE
     Indication: Epidural anaesthesia
     Dosage: 100 MILLIGRAM
     Route: 008
  4. HEPARIN [Suspect]
     Active Substance: HEPARIN SODIUM
     Indication: Anticoagulant therapy
     Dosage: UNK
     Route: 065
  5. LABETALOL [Suspect]
     Active Substance: LABETALOL\LABETALOL HYDROCHLORIDE
     Indication: Blood pressure management
     Dosage: UNK
     Route: 048
  6. METHYLERGONOVINE [Concomitant]
     Active Substance: METHYLERGONOVINE
     Indication: Uterine hypertonus
     Dosage: 40 MILLIGRAM (40 MICROGRAM, GIVEN IN ALIQUOTS OVER 4 MINUTES)
     Route: 065
  7. MORPHINE [Concomitant]
     Active Substance: MORPHINE
     Indication: Postoperative analgesia
     Dosage: 3 MILLIGRAM
     Route: 008

REACTIONS (4)
  - Abdominal wall haematoma [Recovered/Resolved]
  - Exposure during pregnancy [Unknown]
  - Maternal exposure during pregnancy [Recovered/Resolved]
  - Normal newborn [Recovered/Resolved]
